FAERS Safety Report 9103469 (Version 1)
Quarter: 2013Q1

REPORT INFORMATION
  Report Type: Spontaneous
  Country: AT (occurrence: None)
  Receive Date: 20130125
  Receipt Date: 20130125
  Transmission Date: 20140127
  Serious: Yes (Hospitalization)
  Sender: FDA-Public Use
  Company Number: AUR-APL-2013-00870

PATIENT
  Age: 77 Year
  Sex: Male

DRUGS (1)
  1. CLOPIDOGREL (CLOPIDOGREL) [Suspect]
     Indication: CEREBROVASCULAR ACCIDENT

REACTIONS (8)
  - Abdominal pain upper [None]
  - Haematemesis [None]
  - Shock haemorrhagic [None]
  - Respiratory failure [None]
  - Pneumonia aspiration [None]
  - Haematoma [None]
  - Oesophagitis [None]
  - Oesophageal rupture [None]
